FAERS Safety Report 5218391-0 (Version None)
Quarter: 2007Q1

REPORT INFORMATION
  Report Type: 
  Country: None (occurrence: None)
  Receive Date: 20070122
  Receipt Date: 20070109
  Transmission Date: 20070707
  Serious: Yes (Hospitalization)
  Sender: FDA-Public Use
  Company Number: TMDP-NO-0701S-0001

PATIENT
  Age: 31 Year
  Sex: Female

DRUGS (1)
  1. AMERSCAN MDP KIT [Suspect]
     Indication: DRUG USE FOR UNKNOWN INDICATION
     Dosage: 939 MBQ, SINGLE DOSE, I.V.
     Route: 042
     Dates: start: 20061110, end: 20061110

REACTIONS (5)
  - ABORTION SPONTANEOUS [None]
  - DRUG EXPOSURE DURING PREGNANCY [None]
  - HABITUAL ABORTION [None]
  - PAIN [None]
  - VAGINAL DISCHARGE [None]
